FAERS Safety Report 14837504 (Version 2)
Quarter: 2018Q2

REPORT INFORMATION
  Report Type: Spontaneous
  Country: AT (occurrence: AT)
  Receive Date: 20180502
  Receipt Date: 20180529
  Transmission Date: 20180711
  Serious: Yes (Other)
  Sender: FDA-Public Use
  Company Number: PHHY2016AT186733

PATIENT
  Sex: Male
  Weight: 102 kg

DRUGS (1)
  1. TACROLIMUS. [Suspect]
     Active Substance: TACROLIMUS
     Indication: PROPHYLAXIS AGAINST TRANSPLANT REJECTION
     Dosage: 1.5 MG, QD
     Route: 048
     Dates: start: 20151203, end: 20151222

REACTIONS (2)
  - Erythema [Recovered/Resolved]
  - Transplant failure [Recovered/Resolved]

NARRATIVE: CASE EVENT DATE: 20151206
